FAERS Safety Report 8767251 (Version 1)
Quarter: 2012Q4

REPORT INFORMATION
  Report Type: 
  Country: US (occurrence: US)
  Receive Date: 20120904
  Receipt Date: 20120904
  Transmission Date: 20130627
  Serious: Yes (Other)
  Sender: FDA-Public Use
  Company Number: US-RANBAXY-2012US-59445

PATIENT
  Age: 14 Year
  Sex: Female

DRUGS (1)
  1. LORATADINE [Suspect]
     Indication: PRODUCT USED FOR UNKNOWN INDICATION
     Dosage: \
     Route: 065
     Dates: start: 20120821

REACTIONS (3)
  - Dizziness [Unknown]
  - Somnolence [Recovering/Resolving]
  - Fall [Unknown]
